FAERS Safety Report 7226105-8 (Version None)
Quarter: 2011Q1

REPORT INFORMATION
  Report Type: 
  Country: None (occurrence: None)
  Receive Date: 20110113
  Receipt Date: 20110111
  Transmission Date: 20110831
  Serious: Yes (Life-Threatening, Hospitalization)
  Sender: FDA-Public Use
  Company Number: SI-BAYER-2011-002920

PATIENT
  Sex: Female
  Weight: 60 kg

DRUGS (6)
  1. FRAGMIN [Concomitant]
     Indication: ARTHRITIS BACTERIAL
     Route: 030
     Dates: end: 20101025
  2. UNCODEABLE ^UNCLASSIFIABLE^ [Suspect]
     Indication: ARTHRITIS BACTERIAL
  3. CIPRALEX [Concomitant]
     Indication: DEPRESSION
     Dosage: UNKNOWN
     Route: 048
     Dates: end: 20101025
  4. OXYCONTIN [Concomitant]
     Indication: ARTHRITIS BACTERIAL
     Route: 048
  5. CIPRO [Suspect]
     Indication: ARTHRITIS BACTERIAL
     Route: 048
     Dates: start: 20100401, end: 20101004
  6. ARCOXIA [Concomitant]
     Indication: ARTHRITIS BACTERIAL
     Dosage: UNKNOWN
     Route: 048
     Dates: end: 20101025

REACTIONS (1)
  - THROMBOCYTOPENIA [None]
